FAERS Safety Report 5887892-4 (Version None)
Quarter: 2008Q3

REPORT INFORMATION
  Report Type: 
  Country: None (occurrence: None)
  Receive Date: 20080918
  Receipt Date: 20080908
  Transmission Date: 20090109
  Serious: Yes (Other)
  Sender: FDA-Public Use
  Company Number: A0722395A

PATIENT
  Age: 62 Year
  Sex: Female
  Weight: 102.3 kg

DRUGS (5)
  1. AVANDIA [Suspect]
     Dosage: 8MG TWICE PER DAY
     Route: 048
     Dates: start: 20010227, end: 20070809
  2. TRIAMTERENE AND HYDROCHLOROTHIAZIDE [Concomitant]
     Dates: start: 20020108, end: 20020911
  3. PRAVACHOL [Concomitant]
     Dates: start: 20020101
  4. CARBAMAZEPINE [Concomitant]
     Dates: start: 20020108
  5. AMOXAPINE [Concomitant]
     Dates: start: 20020108

REACTIONS (14)
  - CARDIAC FAILURE CONGESTIVE [None]
  - CELLULITIS [None]
  - CORONARY ARTERY DISEASE [None]
  - DEPRESSION [None]
  - DIABETES MELLITUS [None]
  - HYPERTENSION [None]
  - MYOCARDIAL INFARCTION [None]
  - NEUROPATHY PERIPHERAL [None]
  - OEDEMA [None]
  - RETINOPATHY [None]
  - THROMBOSIS [None]
  - TOE AMPUTATION [None]
  - VENTRICULAR ARRHYTHMIA [None]
  - WEIGHT INCREASED [None]
